FAERS Safety Report 16166042 (Version 3)
Quarter: 2019Q2

REPORT INFORMATION
  Report Type: Report from Study
  Country: CA (occurrence: CA)
  Receive Date: 20190406
  Receipt Date: 20190514
  Transmission Date: 20190711
  Serious: Yes (Hospitalization, Other)
  Sender: FDA-Public Use
  Company Number: CA-TAKEDA-2019TUS019931

PATIENT
  Age: 69 Year
  Sex: Male

DRUGS (1)
  1. VEDOLIZUMAB [Suspect]
     Active Substance: VEDOLIZUMAB
     Indication: COLITIS ULCERATIVE
     Dosage: 300 MILLIGRAM
     Route: 042
     Dates: start: 20190219

REACTIONS (6)
  - Diarrhoea [Unknown]
  - Asthenia [Unknown]
  - Colectomy [Unknown]
  - Blood pressure decreased [Unknown]
  - Poor venous access [Unknown]
  - Colostomy [Unknown]

NARRATIVE: CASE EVENT DATE: 2019
